FAERS Safety Report 7069246-0 (Version None)
Quarter: 2010Q4

REPORT INFORMATION
  Report Type: 
  Country: None (occurrence: None)
  Receive Date: 20101028
  Receipt Date: 20101026
  Transmission Date: 20110411
  Serious: Yes (Other)
  Sender: FDA-Public Use
  Company Number: DE-AMGEN-KDL441449

PATIENT

DRUGS (3)
  1. PROLIA [Suspect]
     Indication: PRODUCT USED FOR UNKNOWN INDICATION
     Dosage: 120 MG, UNK
     Route: 058
     Dates: start: 20100623, end: 20100721
  2. FEMARA [Concomitant]
     Indication: BREAST CANCER METASTATIC
     Dosage: 2.5 MG, QD
     Route: 048
  3. BONDRONAT                          /01304701/ [Concomitant]
     Indication: METASTASES TO BONE
     Dosage: 6 MG, Q4WK
     Route: 042

REACTIONS (2)
  - BONE PAIN [None]
  - HYPOKINESIA [None]
